FAERS Safety Report 11904753 (Version 1)
Quarter: 2016Q1

REPORT INFORMATION
  Report Type: Spontaneous
  Country: US (occurrence: US)
  Receive Date: 20160108
  Receipt Date: 20160108
  Transmission Date: 20160526
  Serious: No
  Sender: FDA-Public Use
  Company Number: US-ROCHE-1649445

PATIENT
  Sex: Female

DRUGS (1)
  1. RITUXAN [Suspect]
     Active Substance: RITUXIMAB
     Indication: MULTIPLE SCLEROSIS
     Route: 065

REACTIONS (5)
  - Drug ineffective [Unknown]
  - Anger [Not Recovered/Not Resolved]
  - Malaise [Unknown]
  - Therapeutic response decreased [Unknown]
  - Off label use [Unknown]
